FAERS Safety Report 14959887 (Version 2)
Quarter: 2018Q3

REPORT INFORMATION
  Report Type: Report from Study
  Country: US (occurrence: US)
  Receive Date: 20180531
  Receipt Date: 20180709
  Transmission Date: 20181010
  Serious: Yes (Other)
  Sender: FDA-Public Use
  Company Number: US-ACTELION-A-NJ2018-173001

PATIENT
  Age: 75 Year
  Sex: Male
  Weight: 81.63 kg

DRUGS (1)
  1. OPSUMIT [Suspect]
     Active Substance: MACITENTAN
     Indication: PULMONARY ARTERIAL HYPERTENSION
     Dosage: 10 MG, QD
     Route: 048

REACTIONS (6)
  - Dialysis [Unknown]
  - Fatigue [Unknown]
  - Hypopnoea [Unknown]
  - Heart rate increased [Unknown]
  - Chest discomfort [Unknown]
  - Arrhythmia [Unknown]

NARRATIVE: CASE EVENT DATE: 201805
